FAERS Safety Report 19095660 (Version 2)
Quarter: 2021Q2

REPORT INFORMATION
  Report Type: Spontaneous
  Country: US (occurrence: US)
  Receive Date: 20210406
  Receipt Date: 20210426
  Transmission Date: 20210717
  Serious: Yes (Hospitalization)
  Sender: FDA-Public Use
  Company Number: US-GW PHARMA-202103USGW01347

PATIENT

DRUGS (5)
  1. EPIDIOLEX [Suspect]
     Active Substance: CANNABIDIOL
     Dosage: 100 MILLIGRAM, BID (WEEK 2)
     Route: 048
     Dates: start: 2021, end: 2021
  2. EPIDIOLEX [Suspect]
     Active Substance: CANNABIDIOL
     Dosage: 200 MILLIGRAM, BID (WEEK 4)
     Route: 048
     Dates: start: 2021, end: 2021
  3. EPIDIOLEX [Suspect]
     Active Substance: CANNABIDIOL
     Dosage: WEEK 5: START MAINTENANCE
     Route: 048
     Dates: start: 2021
  4. EPIDIOLEX [Suspect]
     Active Substance: CANNABIDIOL
     Indication: LENNOX-GASTAUT SYNDROME
     Dosage: 100 MILLIGRAM, QD (AT P.M, WEEK 1) (EPIDIOLEX WAS FIRST SHIPPED ON 29 MAR 2021)
     Route: 048
     Dates: start: 202103
  5. EPIDIOLEX [Suspect]
     Active Substance: CANNABIDIOL
     Dosage: 150 MILLIGRAM, BID (WEEK 3)
     Route: 048
     Dates: start: 2021, end: 2021

REACTIONS (3)
  - Drug ineffective [Unknown]
  - Atonic seizures [Unknown]
  - Illness [Unknown]

NARRATIVE: CASE EVENT DATE: 202103
